FAERS Safety Report 18684051 (Version 1)
Quarter: 2020Q4

REPORT INFORMATION
  Report Type: Spontaneous
  Country: CG (occurrence: CG)
  Receive Date: 20201230
  Receipt Date: 20201230
  Transmission Date: 20210114
  Serious: No
  Sender: FDA-Public Use
  Company Number: CG-LUPIN PHARMACEUTICALS INC.-2020-08100

PATIENT

DRUGS (12)
  1. LINEZOLID. [Suspect]
     Active Substance: LINEZOLID
     Indication: TUBERCULOSIS
     Dosage: 6-MONTH INTENSIVE PHASE THERAPY
     Route: 048
  2. PARA-AMINOSALICYLIC ACID [Suspect]
     Active Substance: AMINOSALICYLIC ACID
     Indication: TUBERCULOSIS
     Dosage: 6-MONTH INTENSIVE PHASE THERAPY
     Route: 048
  3. LEVOFLOXACIN. [Suspect]
     Active Substance: LEVOFLOXACIN
     Indication: TUBERCULOSIS
     Dosage: 6-MONTH INTENSIVE PHASE THERAPY
     Route: 048
  4. LEVOFLOXACIN. [Suspect]
     Active Substance: LEVOFLOXACIN
     Dosage: 14-MONTH CONTINUATION PHASE THERAPY
     Route: 048
  5. IMIPENEM [Suspect]
     Active Substance: IMIPENEM
     Indication: TUBERCULOSIS
     Dosage: 6-MONTH INTENSIVE PHASE THERAPY
     Route: 048
  6. CLAVULANATE POTASSIUM [Suspect]
     Active Substance: CLAVULANATE POTASSIUM
     Indication: TUBERCULOSIS
     Dosage: 6-MONTH INTENSIVE PHASE THERAPY
     Route: 048
  7. LINEZOLID. [Suspect]
     Active Substance: LINEZOLID
     Dosage: 14-MONTH CONTINUATION PHASE THERAPY
     Route: 048
  8. CLOFAZIMINE [Suspect]
     Active Substance: CLOFAZIMINE
     Indication: TUBERCULOSIS
     Dosage: 6-MONTH INTENSIVE PHASE THERAPY
     Route: 048
  9. PYRAZINAMIDE. [Suspect]
     Active Substance: PYRAZINAMIDE
     Indication: TUBERCULOSIS
     Dosage: 6-MONTH INTENSIVE PHASE THERAPY
     Route: 048
  10. PYRAZINAMIDE. [Suspect]
     Active Substance: PYRAZINAMIDE
     Dosage: 14-MONTH CONTINUATION PHASE THERAPY
     Route: 048
  11. BEDAQUILINE [Suspect]
     Active Substance: BEDAQUILINE
     Indication: TUBERCULOSIS
     Dosage: 6-MONTH INTENSIVE PHASE THERAPY
     Route: 048
  12. CLOFAZIMINE [Suspect]
     Active Substance: CLOFAZIMINE
     Dosage: 14-MONTH CONTINUATION PHASE THERAPY
     Route: 048

REACTIONS (1)
  - Abdominal discomfort [Unknown]
